FAERS Safety Report 4689810-3 (Version None)
Quarter: 2005Q2

REPORT INFORMATION
  Report Type: 
  Country: None (occurrence: None)
  Receive Date: 20050613
  Receipt Date: 20050613
  Transmission Date: 20051028
  Serious: Yes (Life-Threatening, Hospitalization)
  Sender: FDA-Public Use
  Company Number: None

PATIENT
  Sex: Female
  Weight: 111 kg

DRUGS (3)
  1. ALTEPLASE       50MG/500ML     GENENTECH [Suspect]
     Indication: VENA CAVA THROMBOSIS
     Dosage: 1MG    PER HOUR    INTRAVENOU
     Route: 042
     Dates: start: 20050527, end: 20050528
  2. HEPARIN SODIUM 25,000 UNITS IN DEXTROSE 5% [Suspect]
     Indication: VENA CAVA THROMBOSIS
     Dosage: 500 UNITS    PER HOUR    INTRAVENOU
     Route: 042
     Dates: start: 20050527, end: 20050528
  3. WARFARIN SODIUM [Concomitant]

REACTIONS (2)
  - HAEMATOMA [None]
  - HAEMORRHAGE INTRACRANIAL [None]
